FAERS Safety Report 25837677 (Version 1)
Quarter: 2025Q3

REPORT INFORMATION
  Report Type: Report from Study
  Country: US (occurrence: US)
  Receive Date: 20250923
  Receipt Date: 20250923
  Transmission Date: 20251020
  Serious: Yes (Other)
  Sender: ALEXION PHARMACEUTICALS
  Company Number: US-AstraZeneca-CH-00954893A

PATIENT
  Sex: Female
  Weight: 45.4 kg

DRUGS (16)
  1. OSIMERTINIB [Suspect]
     Active Substance: OSIMERTINIB
     Indication: Lung neoplasm malignant
  2. IBUPROFEN [Concomitant]
     Active Substance: IBUPROFEN
     Route: 065
  3. REFRESH PLUS [Concomitant]
     Active Substance: CARBOXYMETHYLCELLULOSE SODIUM
     Route: 065
  4. PREDNISONE [Concomitant]
     Active Substance: PREDNISONE
     Route: 065
  5. PREVIDENT [Concomitant]
     Active Substance: SODIUM FLUORIDE
     Route: 065
  6. FLONASE [Concomitant]
     Active Substance: FLUTICASONE PROPIONATE
     Route: 065
  7. MAGNESIUM [Concomitant]
     Active Substance: MAGNESIUM
     Route: 065
  8. VITAMIN C [Concomitant]
     Active Substance: ASCORBIC ACID
     Route: 065
  9. FISH OIL [Concomitant]
     Active Substance: FISH OIL
     Route: 065
  10. ASTAXANTHIN [Concomitant]
     Active Substance: ASTAXANTHIN
     Route: 065
  11. HERBALS\SPIRULINA [Concomitant]
     Active Substance: HERBALS\SPIRULINA
     Route: 065
  12. MUPIROCIN [Concomitant]
     Active Substance: MUPIROCIN
     Route: 065
  13. MENAQUINONE 6 [Concomitant]
     Active Substance: MENAQUINONE 6
     Route: 065
  14. VITAMIN D3 [Concomitant]
     Active Substance: CHOLECALCIFEROL
     Route: 065
  15. QUERCETIN [Concomitant]
     Active Substance: QUERCETIN
     Route: 065
  16. ZINC [Concomitant]
     Active Substance: ZINC
     Route: 065

REACTIONS (16)
  - Anaphylactic reaction [Unknown]
  - Migraine [Unknown]
  - Blood magnesium increased [Unknown]
  - Rhinalgia [Unknown]
  - Nervous system disorder [Unknown]
  - Affective disorder [Unknown]
  - Hypersensitivity [Unknown]
  - Muscle disorder [Unknown]
  - Cardiomyopathy [Unknown]
  - Pain [Unknown]
  - Dry eye [Unknown]
  - Auditory disorder [Unknown]
  - Dizziness [Unknown]
  - Vision blurred [Unknown]
  - Mitral valve incompetence [Unknown]
  - Immune system disorder [Unknown]
